FAERS Safety Report 22936508 (Version 5)
Quarter: 2023Q4

REPORT INFORMATION
  Report Type: Report from Study
  Country: BE (occurrence: None)
  Receive Date: 20230912
  Receipt Date: 20231011
  Transmission Date: 20240110
  Serious: Yes (Hospitalization)
  Sender: FDA-Public Use
  Company Number: BE-ROCHE-3417593

PATIENT
  Age: 75 Year
  Sex: Male
  Weight: 85 kg

DRUGS (64)
  1. CEVOSTAMAB [Suspect]
     Active Substance: CEVOSTAMAB
     Indication: Plasma cell myeloma
     Dosage: START DATE OF MOST RECENT DOSE OF CEVOSTAMAB PRIOR TO AE/SAE: 10/JUL/2023 1:38 PM TO 31/JUL/2023 2:5
     Route: 042
     Dates: start: 20230417
  2. CEVOSTAMAB [Suspect]
     Active Substance: CEVOSTAMAB
     Indication: Plasma cell myeloma recurrent
  3. CEVOSTAMAB [Suspect]
     Active Substance: CEVOSTAMAB
     Indication: Plasma cell myeloma
  4. CEVOSTAMAB [Suspect]
     Active Substance: CEVOSTAMAB
     Indication: Plasma cell myeloma refractory
  5. CEVOSTAMAB [Suspect]
     Active Substance: CEVOSTAMAB
     Indication: Plasma cell myeloma refractory
  6. TOCILIZUMAB [Suspect]
     Active Substance: TOCILIZUMAB
     Indication: Cytokine release syndrome
     Route: 042
     Dates: start: 20230421
  7. DIPHENHYDRAMINE [Concomitant]
     Active Substance: DIPHENHYDRAMINE
     Dosage: 25-50 MG
  8. ACETAMINOPHEN [Concomitant]
     Active Substance: ACETAMINOPHEN
     Dosage: 500-1000 MG
     Route: 048
  9. DEXAMETHASONE [Concomitant]
     Active Substance: DEXAMETHASONE
     Dosage: 20 MG (1 HOUR PRE CEVOSTAMAB)
     Route: 042
  10. ZYRTEC (BELGIUM) [Concomitant]
     Route: 048
     Dates: start: 20230914, end: 20230914
  11. PANTOPRAZOLE SODIUM [Concomitant]
     Active Substance: PANTOPRAZOLE SODIUM
     Route: 048
     Dates: start: 20111127
  12. CALCIUM CARBONATE [Concomitant]
     Active Substance: CALCIUM CARBONATE
     Route: 048
     Dates: start: 20130702
  13. EDOXABAN TOSYLATE [Concomitant]
     Active Substance: EDOXABAN TOSYLATE
     Indication: Oedema peripheral
     Route: 048
     Dates: start: 20230203, end: 20230901
  14. TAMSULOSIN HYDROCHLORIDE [Concomitant]
     Active Substance: TAMSULOSIN HYDROCHLORIDE
     Route: 048
     Dates: start: 20090428
  15. SULFAMETOXYDIAZINE [Concomitant]
     Route: 048
     Dates: start: 20200413
  16. PREVALON [Concomitant]
     Route: 048
     Dates: start: 20090717, end: 20230901
  17. LUMIGAN [Concomitant]
     Active Substance: BIMATOPROST
     Route: 047
     Dates: start: 20180227
  18. DAFALGAN [Concomitant]
     Active Substance: ACETAMINOPHEN
     Indication: Pyrexia
     Route: 048
     Dates: start: 20230126
  19. DAFALGAN [Concomitant]
     Active Substance: ACETAMINOPHEN
     Route: 048
     Dates: start: 20230901
  20. PRIVIGEN [Concomitant]
     Active Substance: HUMAN IMMUNOGLOBULIN G
     Route: 042
     Dates: start: 20140225
  21. METFORMIN HYDROCHLORIDE [Concomitant]
     Active Substance: METFORMIN HYDROCHLORIDE
     Route: 048
     Dates: start: 20230428
  22. BISOPROLOL [Concomitant]
     Active Substance: BISOPROLOL\BISOPROLOL FUMARATE
     Route: 048
     Dates: start: 20230428
  23. AMLODIPINE BESYLATE [Concomitant]
     Active Substance: AMLODIPINE BESYLATE
     Indication: Hypertension
     Route: 048
     Dates: start: 20230428, end: 20230924
  24. CRESTOR [Concomitant]
     Active Substance: ROSUVASTATIN CALCIUM
     Route: 048
     Dates: start: 20230428
  25. ACYCLOVIR [Concomitant]
     Active Substance: ACYCLOVIR
     Route: 048
     Dates: start: 20230428
  26. ALLOPURINOL [Concomitant]
     Active Substance: ALLOPURINOL
     Route: 048
     Dates: start: 20230428
  27. METOCLOPRAMIDE HYDROCHLORIDE [Concomitant]
     Active Substance: METOCLOPRAMIDE HYDROCHLORIDE
     Route: 048
     Dates: start: 20230428
  28. INJECTAFER [Concomitant]
     Active Substance: FERRIC CARBOXYMALTOSE
     Route: 042
     Dates: start: 20230619, end: 20230619
  29. OXYGEN [Concomitant]
     Active Substance: OXYGEN
     Dates: start: 20230911
  30. IMODIUM [Concomitant]
     Active Substance: LOPERAMIDE HYDROCHLORIDE
     Route: 048
     Dates: start: 20230710, end: 202307
  31. SINUTAB FORTE (BELGIUM) [Concomitant]
     Route: 048
     Dates: start: 20230729, end: 20230731
  32. NASONEX [Concomitant]
     Active Substance: MOMETASONE FUROATE
     Route: 045
     Dates: start: 20230729
  33. BILASTINE [Concomitant]
     Active Substance: BILASTINE
     Route: 048
     Dates: start: 20230801, end: 20230814
  34. BILASTINE [Concomitant]
     Active Substance: BILASTINE
     Route: 048
     Dates: start: 20230815, end: 20230821
  35. AUGMENTIN [Concomitant]
     Active Substance: AMOXICILLIN\CLAVULANATE POTASSIUM
     Route: 048
     Dates: start: 20230821, end: 20230828
  36. CEFEPIME HYDROCHLORIDE [Concomitant]
     Active Substance: CEFEPIME HYDROCHLORIDE
     Indication: Infection
     Route: 042
     Dates: start: 20230901, end: 20230912
  37. NEUPOGEN [Concomitant]
     Active Substance: FILGRASTIM
     Route: 042
     Dates: start: 20230902, end: 20230902
  38. NEUPOGEN [Concomitant]
     Active Substance: FILGRASTIM
     Route: 042
     Dates: start: 20230904
  39. NICOTINAMIDE [Concomitant]
     Active Substance: NIACINAMIDE
     Dosage: DOSE 1 UNKNOWN
     Dates: start: 20230505
  40. FLAMINAL HYDRO [Concomitant]
     Indication: Neoplasm malignant
     Dosage: DOSE 1 OTHER
     Route: 061
     Dates: start: 202303
  41. FLUOROURACIL [Concomitant]
     Active Substance: FLUOROURACIL
     Indication: Neoplasm malignant
     Dosage: DOSE 1 OTHER
     Route: 061
     Dates: start: 20230628, end: 20230726
  42. LIDOCAINE [Concomitant]
     Active Substance: LIDOCAINE
     Route: 042
     Dates: start: 20230710, end: 20230710
  43. LIDOCAINE [Concomitant]
     Active Substance: LIDOCAINE
     Route: 042
     Dates: start: 20230912, end: 20230912
  44. KEFZOL [Concomitant]
     Active Substance: CEFAZOLIN SODIUM
     Dosage: DOSE 1 OTHER
     Route: 042
     Dates: start: 20230802, end: 20230802
  45. BETAMETHASONE VALERATE\FUSIDIC ACID [Concomitant]
     Active Substance: BETAMETHASONE VALERATE\FUSIDIC ACID
     Indication: Neoplasm malignant
     Dosage: DOSE 1 OTHER
     Route: 061
     Dates: start: 202305, end: 20230614
  46. FUCIDIN [Concomitant]
     Active Substance: FUSIDATE SODIUM
     Indication: Neoplasm malignant
     Dosage: DOSE 1 OTHER
     Route: 061
     Dates: start: 202305, end: 20230614
  47. ADRENALIN [Concomitant]
     Active Substance: EPINEPHRINE
     Dosage: DOSE 1 OTHER
     Route: 042
     Dates: start: 20230628, end: 20230628
  48. HUMAN RED BLOOD CELL [Concomitant]
     Active Substance: HUMAN RED BLOOD CELL
     Indication: Anaemia
     Route: 042
     Dates: start: 20230904, end: 20230905
  49. HUMAN RED BLOOD CELL [Concomitant]
     Active Substance: HUMAN RED BLOOD CELL
     Route: 042
     Dates: start: 20230911, end: 20230911
  50. HUMAN RED BLOOD CELL [Concomitant]
     Active Substance: HUMAN RED BLOOD CELL
     Route: 042
     Dates: start: 20230913, end: 20230914
  51. HUMAN RED BLOOD CELL [Concomitant]
     Active Substance: HUMAN RED BLOOD CELL
     Route: 042
     Dates: start: 20230919, end: 20230920
  52. HUMAN RED BLOOD CELL [Concomitant]
     Active Substance: HUMAN RED BLOOD CELL
     Route: 042
     Dates: start: 20230923, end: 20230924
  53. ACETAMINOPHEN [Concomitant]
     Active Substance: ACETAMINOPHEN
     Indication: Pyrexia
     Route: 042
     Dates: start: 20230909, end: 20230909
  54. ACETAMINOPHEN [Concomitant]
     Active Substance: ACETAMINOPHEN
     Route: 042
     Dates: start: 20230925, end: 20230925
  55. ALIZAPRIDE HYDROCHLORIDE [Concomitant]
     Active Substance: ALIZAPRIDE HYDROCHLORIDE
     Indication: Nausea
     Route: 042
     Dates: start: 20230914, end: 20230914
  56. ELTROMBOPAG OLAMINE [Concomitant]
     Active Substance: ELTROMBOPAG OLAMINE
     Indication: Anaemia
     Route: 048
     Dates: start: 20230911, end: 20230918
  57. ELTROMBOPAG OLAMINE [Concomitant]
     Active Substance: ELTROMBOPAG OLAMINE
     Route: 048
     Dates: start: 20230919
  58. ARANESP [Concomitant]
     Active Substance: DARBEPOETIN ALFA
     Indication: Anaemia
     Route: 030
     Dates: start: 20230911, end: 20230911
  59. ARANESP [Concomitant]
     Active Substance: DARBEPOETIN ALFA
     Route: 058
     Dates: start: 20230925, end: 20230925
  60. BUMETANIDE [Concomitant]
     Active Substance: BUMETANIDE
     Indication: Oedema peripheral
     Route: 042
     Dates: start: 20230914, end: 20230917
  61. BUMETANIDE [Concomitant]
     Active Substance: BUMETANIDE
     Route: 042
     Dates: start: 20230928
  62. AVELOX [Concomitant]
     Active Substance: MOXIFLOXACIN HYDROCHLORIDE
     Indication: Infection
     Route: 048
     Dates: start: 20230912, end: 20230922
  63. LASIX [Concomitant]
     Active Substance: FUROSEMIDE
     Route: 042
     Dates: start: 20230919, end: 20230920
  64. AZITHROMYCIN [Concomitant]
     Active Substance: AZITHROMYCIN
     Indication: Infection
     Route: 048
     Dates: start: 20230922, end: 20230924

REACTIONS (3)
  - Thrombocytopenia [Not Recovered/Not Resolved]
  - Neutropenia [Not Recovered/Not Resolved]
  - Respiratory tract infection [Not Recovered/Not Resolved]

NARRATIVE: CASE EVENT DATE: 20230710
